FAERS Safety Report 9301678 (Version 1)
Quarter: 2013Q2

REPORT INFORMATION
  Report Type: Report from Study
  Country: US (occurrence: US)
  Receive Date: 20130521
  Receipt Date: 20130521
  Transmission Date: 20140414
  Serious: Yes (Hospitalization)
  Sender: FDA-Public Use
  Company Number: US-ACTELION-A-US2013-83174

PATIENT
  Age: 71 Year
  Sex: Female

DRUGS (2)
  1. TRACLEER [Suspect]
     Indication: PULMONARY ARTERIAL HYPERTENSION
     Dosage: UNK
     Route: 048
     Dates: start: 20070427, end: 20130430
  2. COUMADIN [Concomitant]

REACTIONS (2)
  - Pulmonary embolism [Recovering/Resolving]
  - Deep vein thrombosis [Recovering/Resolving]
